FAERS Safety Report 25482966 (Version 1)
Quarter: 2025Q2

REPORT INFORMATION
  Report Type: Spontaneous
  Country: FR (occurrence: FR)
  Receive Date: 20250626
  Receipt Date: 20250626
  Transmission Date: 20250717
  Serious: Yes (Other)
  Sender: ROCHE
  Company Number: None

PATIENT
  Age: 31 Year
  Sex: Female
  Weight: 86 kg

DRUGS (4)
  1. XOLAIR [Suspect]
     Active Substance: OMALIZUMAB
     Indication: Severe asthma with fungal sensitisation
     Dosage: 450 MG, TIW
     Route: 058
     Dates: start: 20190416
  2. PREDNISONE [Suspect]
     Active Substance: PREDNISONE
     Indication: Severe asthma with fungal sensitisation
     Dosage: 20 MG, QD
     Route: 048
     Dates: start: 2020
  3. GLYCOPYRROLATE [Suspect]
     Active Substance: GLYCOPYRROLATE
     Indication: Severe asthma with fungal sensitisation
     Route: 055
     Dates: start: 20200228
  4. FLUTICASONE FUROATE [Suspect]
     Active Substance: FLUTICASONE FUROATE
     Indication: Nasal polyps
     Dosage: 27.5 UG, QD
     Route: 045
     Dates: start: 2018

REACTIONS (3)
  - Abortion spontaneous [Unknown]
  - Maternal exposure during pregnancy [Unknown]
  - Maternal exposure before pregnancy [Unknown]

NARRATIVE: CASE EVENT DATE: 20210226
